FAERS Safety Report 24405800 (Version 1)
Quarter: 2024Q4

REPORT INFORMATION
  Report Type: Report from Study
  Country: US (occurrence: US)
  Receive Date: 20241007
  Receipt Date: 20241007
  Transmission Date: 20250114
  Serious: Yes (Hospitalization, Disabling, Other)
  Sender: ROCHE
  Company Number: US-ROCHE-10000091746

PATIENT
  Age: 53 Year
  Sex: Male
  Weight: 88.45 kg

DRUGS (5)
  1. OCREVUS [Suspect]
     Active Substance: OCRELIZUMAB
     Indication: Relapsing multiple sclerosis
     Route: 042
  2. ANASTROZOLE [Concomitant]
     Active Substance: ANASTROZOLE
     Indication: Mass
     Route: 048
     Dates: start: 202409
  3. ROSUVASTATIN [Concomitant]
     Active Substance: ROSUVASTATIN
     Indication: Blood cholesterol
     Route: 048
  4. MODAFINIL [Concomitant]
     Active Substance: MODAFINIL
     Indication: Brain fog
     Route: 048
  5. MODAFINIL [Concomitant]
     Active Substance: MODAFINIL
     Indication: Fatigue

REACTIONS (9)
  - Arthritis bacterial [Recovered/Resolved]
  - Ligament sprain [Recovered/Resolved with Sequelae]
  - Infection [Recovered/Resolved]
  - Mass [Not Recovered/Not Resolved]
  - Insomnia [Unknown]
  - Anaphylactic shock [Recovered/Resolved]
  - Joint swelling [Unknown]
  - Arthralgia [Unknown]
  - Central nervous system lesion [Unknown]

NARRATIVE: CASE EVENT DATE: 20240401
